FAERS Safety Report 6556819-4 (Version None)
Quarter: 2010Q1

REPORT INFORMATION
  Report Type: 
  Country: None (occurrence: None)
  Receive Date: 20100125
  Receipt Date: 20100115
  Transmission Date: 20100710
  Serious: Yes (Hospitalization)
  Sender: FDA-Public Use
  Company Number: 2009029422

PATIENT
  Age: 54 Year
  Sex: Female

DRUGS (1)
  1. NUVIGIL [Suspect]
     Dosage: ORAL
     Route: 048
     Dates: start: 20090901

REACTIONS (15)
  - ARTHRALGIA [None]
  - CEREBRAL CALCIFICATION [None]
  - CONJUNCTIVITIS [None]
  - CONNECTIVE TISSUE DISORDER [None]
  - MENTAL STATUS CHANGES [None]
  - MILK ALLERGY [None]
  - PAIN IN EXTREMITY [None]
  - PHARYNGITIS [None]
  - PYREXIA [None]
  - RASH [None]
  - STEVENS-JOHNSON SYNDROME [None]
  - SWOLLEN TONGUE [None]
  - SYSTEMIC LUPUS ERYTHEMATOSUS [None]
  - VASCULITIS [None]
  - VISION BLURRED [None]
